FAERS Safety Report 7777068-8 (Version None)
Quarter: 2011Q3

REPORT INFORMATION
  Report Type: 
  Country: None (occurrence: None)
  Receive Date: 20110926
  Receipt Date: 20110926
  Transmission Date: 20111222
  Serious: Yes (Life-Threatening, Other)
  Sender: FDA-Public Use
  Company Number: None

PATIENT
  Age: 22 Year
  Sex: Male
  Weight: 81.646 kg

DRUGS (1)
  1. PROCENTRA -D-AMPHETAMINE SULFT.- [Suspect]
     Indication: ATTENTION DEFICIT/HYPERACTIVITY DISORDER
     Dosage: 10MG
     Route: 048
     Dates: start: 20110915, end: 20110923

REACTIONS (13)
  - VISUAL IMPAIRMENT [None]
  - MALAISE [None]
  - MIGRAINE [None]
  - PRODUCT QUALITY ISSUE [None]
  - HEART RATE INCREASED [None]
  - HYPOPHAGIA [None]
  - VOMITING [None]
  - DYSPNOEA [None]
  - DIZZINESS [None]
  - MYDRIASIS [None]
  - BLOOD PRESSURE DECREASED [None]
  - DISTURBANCE IN ATTENTION [None]
  - NAUSEA [None]
